FAERS Safety Report 14465898 (Version 1)
Quarter: 2018Q1

REPORT INFORMATION
  Report Type: Spontaneous
  Country: FR (occurrence: FR)
  Receive Date: 20180131
  Receipt Date: 20180131
  Transmission Date: 20180509
  Serious: Yes (Other)
  Sender: FDA-Public Use
  Company Number: FR-009507513-1801FRA008347

PATIENT
  Age: 23 Year
  Sex: Female
  Weight: 68 kg

DRUGS (1)
  1. NEXPLANON [Suspect]
     Active Substance: ETONOGESTREL
     Indication: CONTRACEPTION
     Dosage: UNK
     Route: 058
     Dates: start: 20150213, end: 20170110

REACTIONS (5)
  - Migraine [Recovered/Resolved]
  - Libido decreased [Recovered/Resolved]
  - Haemorrhage [Recovered/Resolved]
  - Vertigo [Recovered/Resolved]
  - Burnout syndrome [Recovered/Resolved]

NARRATIVE: CASE EVENT DATE: 20150214
